FAERS Safety Report 16306182 (Version 3)
Quarter: 2023Q2

REPORT INFORMATION
  Report Type: Spontaneous
  Country: US (occurrence: None)
  Receive Date: 20190513
  Receipt Date: 20230504
  Transmission Date: 20230722
  Serious: Yes (Other)
  Sender: FDA-Public Use
  Company Number: 2019SE65208

PATIENT
  Age: 22689 Day
  Sex: Male

DRUGS (104)
  1. NEXIUM [Suspect]
     Active Substance: ESOMEPRAZOLE MAGNESIUM
     Indication: Gastrooesophageal reflux disease
     Route: 048
     Dates: start: 201205
  2. PRILOSEC [Suspect]
     Active Substance: OMEPRAZOLE MAGNESIUM
     Indication: Gastrooesophageal reflux disease
     Route: 048
  3. PRILOSEC [Suspect]
     Active Substance: OMEPRAZOLE MAGNESIUM
     Indication: Gastrooesophageal reflux disease
     Dosage: GENERIC
     Route: 065
     Dates: start: 201101
  4. PREVACID [Suspect]
     Active Substance: LANSOPRAZOLE
     Indication: Gastrooesophageal reflux disease
     Route: 065
  5. DOXEPIN [Concomitant]
     Active Substance: DOXEPIN
  6. IBUPROFEN [Concomitant]
     Active Substance: IBUPROFEN
     Indication: Pain
  7. IBUPROFEN [Concomitant]
     Active Substance: IBUPROFEN
     Indication: Headache
  8. EXCEDRIN [Concomitant]
     Active Substance: ACETAMINOPHEN\ASPIRIN\CAFFEINE
     Indication: Pain
  9. EXCEDRIN [Concomitant]
     Active Substance: ACETAMINOPHEN\ASPIRIN\CAFFEINE
     Indication: Headache
  10. TYLENOL [Concomitant]
     Active Substance: ACETAMINOPHEN
     Indication: Pain
  11. TYLENOL [Concomitant]
     Active Substance: ACETAMINOPHEN
     Indication: Headache
  12. ASPIRIN [Concomitant]
     Active Substance: ASPIRIN
     Indication: Pain
  13. ASPIRIN [Concomitant]
     Active Substance: ASPIRIN
     Indication: Headache
  14. ALEVE [Concomitant]
     Active Substance: NAPROXEN SODIUM
     Indication: Pain
  15. ALEVE [Concomitant]
     Active Substance: NAPROXEN SODIUM
     Indication: Headache
  16. BENADRYL [Concomitant]
     Active Substance: DIPHENHYDRAMINE HYDROCHLORIDE
     Indication: Hypersensitivity
  17. VITAMIN E [Concomitant]
     Active Substance: .ALPHA.-TOCOPHEROL
     Indication: Blood cholesterol abnormal
  18. FISH OIL [Concomitant]
     Active Substance: FISH OIL
     Indication: Blood cholesterol abnormal
  19. FAMOTIDINE [Concomitant]
     Active Substance: FAMOTIDINE
  20. ZANTAC [Concomitant]
     Active Substance: RANITIDINE HYDROCHLORIDE
  21. MYLANTA [Concomitant]
     Active Substance: ALUMINUM HYDROXIDE\DIMETHICONE\MAGNESIUM HYDROXIDE
  22. CRESTOR [Concomitant]
     Active Substance: ROSUVASTATIN CALCIUM
  23. COUMADIN [Concomitant]
     Active Substance: WARFARIN SODIUM
  24. FOLIC ACID [Concomitant]
     Active Substance: FOLIC ACID
  25. VITAMIN D [Concomitant]
     Active Substance: VITAMIN D NOS
  26. MIRTAZAPINE [Concomitant]
     Active Substance: MIRTAZAPINE
  27. DULERA [Concomitant]
     Active Substance: FORMOTEROL FUMARATE DIHYDRATE\MOMETASONE FUROATE
  28. SPIRIVA [Concomitant]
     Active Substance: TIOTROPIUM BROMIDE MONOHYDRATE
  29. LANTUS [Concomitant]
     Active Substance: INSULIN GLARGINE
  30. LORAZEPAM [Concomitant]
     Active Substance: LORAZEPAM
  31. QUETIAPINE [Concomitant]
     Active Substance: QUETIAPINE
  32. ALPRAZOLAM [Concomitant]
     Active Substance: ALPRAZOLAM
  33. MORPHINE SULFATE [Concomitant]
     Active Substance: MORPHINE SULFATE
  34. ATROPINE SULFATE [Concomitant]
     Active Substance: ATROPINE SULFATE
  35. DRONABINOL [Concomitant]
     Active Substance: DRONABINOL
  36. ACETAMINOPHEN\HYDROCODONE BITARTRATE [Concomitant]
     Active Substance: ACETAMINOPHEN\HYDROCODONE BITARTRATE
  37. RENVELA [Concomitant]
     Active Substance: SEVELAMER CARBONATE
  38. WARFARIN [Concomitant]
     Active Substance: WARFARIN
  39. FLUTICASONE [Concomitant]
     Active Substance: FLUTICASONE
  40. LACTULOSE [Concomitant]
     Active Substance: LACTULOSE
  41. AMLODIPINE [Concomitant]
     Active Substance: AMLODIPINE BESYLATE
  42. SODIUM BICARBONATE [Concomitant]
     Active Substance: SODIUM BICARBONATE
  43. PROAIR HFA [Concomitant]
     Active Substance: ALBUTEROL SULFATE
  44. CLOPIDOGREL [Concomitant]
     Active Substance: CLOPIDOGREL BISULFATE
  45. CALCIUM ACETATE [Concomitant]
     Active Substance: CALCIUM ACETATE
  46. BYDUREON [Concomitant]
     Active Substance: EXENATIDE
  47. AMOX/K [Concomitant]
  48. PREDNISONE [Concomitant]
     Active Substance: PREDNISONE
  49. DONEPEZIL [Concomitant]
     Active Substance: DONEPEZIL
  50. ACYCLOVIR [Concomitant]
     Active Substance: ACYCLOVIR
  51. HYDRALAZINE [Concomitant]
     Active Substance: HYDRALAZINE HYDROCHLORIDE
  52. CYCLOBENZAPRINE [Concomitant]
     Active Substance: CYCLOBENZAPRINE
  53. POLYETHYLENE GLYCOL [Concomitant]
     Active Substance: POLYETHYLENE GLYCOL
  54. GLYBURIDE [Concomitant]
     Active Substance: GLYBURIDE
  55. ATORVASTATIN [Concomitant]
     Active Substance: ATORVASTATIN
  56. DIVALPROEX SODIUM [Concomitant]
     Active Substance: DIVALPROEX SODIUM
  57. ONGLYZA [Concomitant]
     Active Substance: SAXAGLIPTIN HYDROCHLORIDE
  58. GEODON [Concomitant]
     Active Substance: ZIPRASIDONE HYDROCHLORIDE\ZIPRASIDONE MESYLATE
  59. ADVAIR DISKUS [Concomitant]
     Active Substance: FLUTICASONE PROPIONATE\SALMETEROL XINAFOATE
  60. GEMFIBROZIL [Concomitant]
     Active Substance: GEMFIBROZIL
  61. GLUCOVANCE [Concomitant]
     Active Substance: GLYBURIDE\METFORMIN HYDROCHLORIDE
  62. POTASSIUM CHLORIDE [Concomitant]
     Active Substance: POTASSIUM CHLORIDE
  63. PLAVIX [Concomitant]
     Active Substance: CLOPIDOGREL BISULFATE
  64. VYTORIN [Concomitant]
     Active Substance: EZETIMIBE\SIMVASTATIN
  65. AMIODARONE [Concomitant]
     Active Substance: AMIODARONE
  66. BENICAR [Concomitant]
     Active Substance: OLMESARTAN MEDOXOMIL
  67. BETADINE [Concomitant]
     Active Substance: POVIDONE-IODINE
  68. CHLORHEXIDINE [Concomitant]
     Active Substance: CHLORHEXIDINE
  69. IODINE [Concomitant]
     Active Substance: IODINE
  70. BACITRACIN/POLYMYXIN B SULFATE [Concomitant]
  71. DOCUSATE SODIUM [Concomitant]
     Active Substance: DOCUSATE SODIUM
  72. DEXTROSE [Concomitant]
     Active Substance: DEXTROSE\DEXTROSE MONOHYDRATE
  73. ACETAMINOPHEN\CODEINE PHOSPHATE [Concomitant]
     Active Substance: ACETAMINOPHEN\CODEINE PHOSPHATE
  74. DIPHENHYDRAMINE [Concomitant]
     Active Substance: DIPHENHYDRAMINE
  75. FLUOCINONIDE [Concomitant]
     Active Substance: FLUOCINONIDE
  76. GLUCAGON [Concomitant]
     Active Substance: GLUCAGON
  77. UNSPECIFIED INGREDIENT [Concomitant]
     Active Substance: UNSPECIFIED INGREDIENT
  78. MAGNESIUM HYDROXIDE [Concomitant]
     Active Substance: MAGNESIUM HYDROXIDE
  79. ONDANSETRON [Concomitant]
     Active Substance: ONDANSETRON
  80. PROPOXYPHENE [Concomitant]
     Active Substance: PROPOXYPHENE
  81. PROTAMINE [Concomitant]
     Active Substance: PROTAMINE
  82. DOBUTAMINE [Concomitant]
     Active Substance: DOBUTAMINE HYDROCHLORIDE
  83. NOREPINEPHRINE [Concomitant]
     Active Substance: NOREPINEPHRINE
  84. DARVOCET [Concomitant]
     Active Substance: ACETAMINOPHEN\PROPOXYPHENE HYDROCHLORIDE
  85. MICARDIS [Concomitant]
     Active Substance: TELMISARTAN
  86. ZOVIRAX [Concomitant]
     Active Substance: ACYCLOVIR
  87. AMBIEN [Concomitant]
     Active Substance: ZOLPIDEM TARTRATE
  88. ZOLOFT [Concomitant]
     Active Substance: SERTRALINE HYDROCHLORIDE
  89. PHENAZOPYRIDINE [Concomitant]
     Active Substance: PHENAZOPYRIDINE
  90. LINAGLIPTIN [Concomitant]
     Active Substance: LINAGLIPTIN
  91. PROCHLORPERAZINE [Concomitant]
     Active Substance: PROCHLORPERAZINE
  92. OLOPATADINE HYDROCHLORIDE [Concomitant]
     Active Substance: OLOPATADINE HYDROCHLORIDE
  93. DOXYCYCLINE HYCLATE [Concomitant]
     Active Substance: DOXYCYCLINE HYCLATE
  94. BENZONATATE [Concomitant]
     Active Substance: BENZONATATE
  95. AMMONIUM CHLORIDE\DEXTROMETHORPHAN\SODIUM CITRATE [Concomitant]
     Active Substance: AMMONIUM CHLORIDE\DEXTROMETHORPHAN\SODIUM CITRATE
  96. HUMALOG [Concomitant]
     Active Substance: INSULIN LISPRO
  97. IMITREX [Concomitant]
     Active Substance: SUMATRIPTAN SUCCINATE
  98. PRIMIDONE [Concomitant]
     Active Substance: PRIMIDONE
  99. SODIUM CHLORIDE [Concomitant]
     Active Substance: SODIUM CHLORIDE
  100. LOPID [Concomitant]
     Active Substance: GEMFIBROZIL
  101. VALIUM [Concomitant]
     Active Substance: DIAZEPAM
  102. NAMENDA [Concomitant]
     Active Substance: MEMANTINE HYDROCHLORIDE
  103. INDERAL [Concomitant]
     Active Substance: PROPRANOLOL HYDROCHLORIDE
  104. COLCHICINE [Concomitant]
     Active Substance: COLCHICINE

REACTIONS (3)
  - Chronic kidney disease [Not Recovered/Not Resolved]
  - Acute kidney injury [Unknown]
  - Renal failure [Unknown]

NARRATIVE: CASE EVENT DATE: 20120513
